FAERS Safety Report 5040637-2 (Version None)
Quarter: 2006Q2

REPORT INFORMATION
  Report Type: 
  Country: None (occurrence: None)
  Receive Date: 20060628
  Receipt Date: 20060613
  Transmission Date: 20061013
  Serious: Yes (Hospitalization, Other)
  Sender: FDA-Public Use
  Company Number: 2006RR-02643

PATIENT
  Age: 16 Month
  Sex: Female

DRUGS (4)
  1. CO-AMOXICLAV [Suspect]
     Dosage: QD
     Dates: start: 19960101, end: 19960101
  2. LAMOTRIGINE [Suspect]
     Indication: GRAND MAL CONVULSION
     Dosage: 150 MG, UNK, ORAL
     Route: 048
     Dates: start: 19960101, end: 19960101
  3. PHENOXYMETHYLPENICILLIN POTASSIUM              (PHENOXYMETHYLPENICILLI [Suspect]
     Indication: CONVULSION
     Dosage: 9 MG
  4. FLUCONAZOLE [Concomitant]

REACTIONS (13)
  - ABNORMAL FAECES [None]
  - CANDIDIASIS [None]
  - CONVULSION [None]
  - DIARRHOEA [None]
  - DRUG INEFFECTIVE [None]
  - EPISTAXIS [None]
  - LACTOSE INTOLERANCE [None]
  - PHARYNGEAL OEDEMA [None]
  - RASH GENERALISED [None]
  - UPPER LIMB FRACTURE [None]
  - UPPER RESPIRATORY TRACT INFECTION [None]
  - URINARY RETENTION [None]
  - VOMITING PROJECTILE [None]
